FAERS Safety Report 5735998-2 (Version None)
Quarter: 2008Q2

REPORT INFORMATION
  Report Type: 
  Country: None (occurrence: None)
  Receive Date: 20080509
  Receipt Date: 20080501
  Transmission Date: 20081010
  Serious: Yes (Death, Hospitalization)
  Sender: FDA-Public Use
  Company Number: 163-21880-08041984

PATIENT
  Age: 77 Year
  Sex: Female

DRUGS (1)
  1. REVLIMID [Suspect]
     Indication: MULTIPLE MYELOMA
     Dosage: 15 MG, 3 WEEKS ON AND 3 WEEKS OFF, ORAL
     Route: 048
     Dates: start: 20080414, end: 20080428

REACTIONS (1)
  - DISEASE COMPLICATION [None]
